FAERS Safety Report 10427481 (Version 3)
Quarter: 2014Q4

REPORT INFORMATION
  Report Type: Spontaneous
  Country: CA (occurrence: CA)
  Receive Date: 20140903
  Receipt Date: 20141230
  Transmission Date: 20150528
  Serious: No
  Sender: FDA-Public Use
  Company Number: CA-ASTELLAS-2014US011332

PATIENT
  Sex: Male

DRUGS (1)
  1. PROGRAF [Suspect]
     Active Substance: TACROLIMUS\TACROLIMUS ANHYDROUS
     Indication: RENAL TRANSPLANT
     Dosage: 0.5 MG, ONCE DAILY
     Route: 048
     Dates: start: 20040715, end: 20130129

REACTIONS (1)
  - Drug ineffective [Not Recovered/Not Resolved]
